FAERS Safety Report 5962232-0 (Version None)
Quarter: 2008Q4

REPORT INFORMATION
  Report Type: 
  Country: None (occurrence: None)
  Receive Date: 20081121
  Receipt Date: 20081118
  Transmission Date: 20090506
  Serious: Yes (Life-Threatening, Hospitalization)
  Sender: FDA-Public Use
  Company Number: JP-B.I. PHARMACEUTICALS,INC./RIDGEFIELD-2008-BP-14123NB

PATIENT
  Sex: Male
  Weight: 52 kg

DRUGS (4)
  1. MICARDIS [Suspect]
     Indication: HYPERTENSION
     Dosage: 20MG
     Route: 048
     Dates: start: 20060904, end: 20080820
  2. ATELEC [Concomitant]
     Indication: HYPERTENSION
     Dosage: 5MG
     Route: 048
     Dates: start: 20020422, end: 20080820
  3. GASTER D [Concomitant]
     Indication: GASTRITIS
     Dosage: 20MG
     Route: 048
     Dates: start: 20011203
  4. GASTROM [Concomitant]
     Indication: GASTRITIS
     Dosage: 3G
     Route: 048
     Dates: start: 20011203

REACTIONS (6)
  - ABDOMINAL DISCOMFORT [None]
  - ANOREXIA [None]
  - COLONIC POLYP [None]
  - INSOMNIA [None]
  - LIVER DISORDER [None]
  - SUDDEN HEARING LOSS [None]
